FAERS Safety Report 6235536-4 (Version None)
Quarter: 2009Q2

REPORT INFORMATION
  Report Type: 
  Country: None (occurrence: None)
  Receive Date: 20090618
  Receipt Date: 20081103
  Transmission Date: 20091009
  Serious: No
  Sender: FDA-Public Use
  Company Number: US-ASTRAZENECA-2008UW24588

PATIENT
  Age: 14 Year
  Sex: Male
  Weight: 61.7 kg

DRUGS (3)
  1. RHINOCORT [Suspect]
     Dosage: 32 MCG
     Route: 045
  2. ZYRTEC [Concomitant]
  3. SINGULAIR [Concomitant]

REACTIONS (1)
  - HAEMORRHAGE [None]
